FAERS Safety Report 9189441 (Version 1)
Quarter: 2013Q1

REPORT INFORMATION
  Report Type: Spontaneous
  Country: NL (occurrence: NL)
  Receive Date: 20130326
  Receipt Date: 20130326
  Transmission Date: 20140127
  Serious: Yes (Hospitalization, Other)
  Sender: FDA-Public Use
  Company Number: PHHY2013NL028521

PATIENT
  Sex: Female

DRUGS (4)
  1. ZOMETA [Suspect]
     Indication: LUNG CANCER METASTATIC
     Dosage: 4 MG/100ML,ONCE PER 28 DAYS
     Route: 042
  2. ZOMETA [Suspect]
     Dosage: 4 MG/100ML,ONCE PER 28 DAYS
     Route: 042
     Dates: start: 20130128
  3. ZOMETA [Suspect]
     Dosage: 4 MG/100ML,ONCE PER 28 DAYS
     Route: 042
     Dates: start: 20130228
  4. ZOMETA [Suspect]
     Dosage: 4 MG/100ML,ONCE PER 28 DAYS
     Route: 042
     Dates: start: 20130313

REACTIONS (1)
  - Terminal state [Unknown]
